FAERS Safety Report 25796915 (Version 2)
Quarter: 2025Q3

REPORT INFORMATION
  Report Type: Spontaneous
  Country: GB (occurrence: GB)
  Receive Date: 20250912
  Receipt Date: 20250917
  Transmission Date: 20251020
  Serious: Yes (Hospitalization, Other)
  Sender: FERRING
  Company Number: None

PATIENT

DRUGS (4)
  1. PROGESTERONE [Suspect]
     Active Substance: PROGESTERONE
     Indication: Product used for unknown indication
     Route: 065
     Dates: start: 20250819
  2. DERMOL [Concomitant]
     Active Substance: BENZALKONIUM CHLORIDE\CHLORHEXIDINE HYDROCHLORIDE\ISOPROPYL MYRISTATE\PARAFFIN
     Route: 065
  3. CLINDAMYCIN [Concomitant]
     Active Substance: CLINDAMYCIN
     Dosage: 1 DOSAGE FORM, 1 TIME DAILY, BENZOYL PEROXIDE 5% / CLINDAMYCIN 1% GEL APPLY ONCE A DAY IN THE EVENIN
     Route: 065
  4. SERTRALINE [Concomitant]
     Active Substance: SERTRALINE HYDROCHLORIDE
     Dosage: 200 MG, 1 TIME DAILY, 100 MG TABLETS TWO TO TAKEN DAILY
     Route: 065

REACTIONS (1)
  - Drug-induced liver injury [Recovered/Resolved with Sequelae]
